FAERS Safety Report 23551565 (Version 2)
Quarter: 2025Q3

REPORT INFORMATION
  Report Type: Report from Study
  Country: US (occurrence: US)
  Receive Date: 20240222
  Receipt Date: 20250818
  Transmission Date: 20251021
  Serious: No
  Sender: ABBVIE
  Company Number: US-ABBVIE-5648150

PATIENT
  Sex: Male

DRUGS (1)
  1. HUMIRA [Suspect]
     Active Substance: ADALIMUMAB
     Indication: Inflammatory bowel disease
     Route: 058

REACTIONS (3)
  - Off label use [Unknown]
  - Injection site pain [Not Recovered/Not Resolved]
  - Needle issue [Not Recovered/Not Resolved]
